FAERS Safety Report 13352251 (Version 1)
Quarter: 2017Q1

REPORT INFORMATION
  Report Type: Spontaneous
  Country: US (occurrence: US)
  Receive Date: 20170320
  Receipt Date: 20170320
  Transmission Date: 20170429
  Serious: Yes (Other)
  Sender: FDA-Public Use
  Company Number: US-SA-2016SA099234

PATIENT
  Sex: Female

DRUGS (1)
  1. NASACORT ALLERGY 24HR [Suspect]
     Active Substance: TRIAMCINOLONE ACETONIDE
     Indication: SINUSITIS
     Dosage: 1 SAPRAY EACH NOSTRIL
     Route: 045
     Dates: start: 20160518

REACTIONS (2)
  - Drug administration error [Unknown]
  - Iris injury [Unknown]

NARRATIVE: CASE EVENT DATE: 20160519
